FAERS Safety Report 25039624 (Version 5)
Quarter: 2025Q2

REPORT INFORMATION
  Report Type: Report from Study
  Country: IT (occurrence: IT)
  Receive Date: 20250305
  Receipt Date: 20250611
  Transmission Date: 20250716
  Serious: Yes (Other)
  Sender: NOVARTIS
  Company Number: IT-002147023-NVSC2025IT035988

PATIENT
  Age: 57 Year
  Sex: Female

DRUGS (3)
  1. COSENTYX [Suspect]
     Active Substance: SECUKINUMAB
     Indication: Psoriatic arthropathy
     Dosage: 300 MG, QMO
     Route: 058
     Dates: start: 20240703
  2. COSENTYX [Suspect]
     Active Substance: SECUKINUMAB
     Indication: Rheumatoid arthritis
     Dosage: 300 MG, QMO
     Route: 058
     Dates: start: 20240902, end: 202412
  3. COSENTYX [Suspect]
     Active Substance: SECUKINUMAB
     Dosage: 300 MG, QMO
     Route: 058
     Dates: end: 20250227

REACTIONS (25)
  - Immunodeficiency [Unknown]
  - Infection [Not Recovered/Not Resolved]
  - Pathogen resistance [Unknown]
  - Ill-defined disorder [Unknown]
  - Ear infection [Unknown]
  - Lymphadenopathy [Unknown]
  - Swelling face [Unknown]
  - Granuloma [Unknown]
  - Pain [Unknown]
  - Dysstasia [Unknown]
  - Otorrhoea [Unknown]
  - Pseudomonas test positive [Unknown]
  - Eye infection [Unknown]
  - Herpes simplex [Unknown]
  - Neck pain [Unknown]
  - Toothache [Recovering/Resolving]
  - Intrusive thoughts [Unknown]
  - Insomnia [Unknown]
  - Movement disorder [Unknown]
  - Spondylitis [Unknown]
  - Pain in extremity [Unknown]
  - Psoriasis [Unknown]
  - Onychoclasis [Unknown]
  - Pustule [Unknown]
  - Gammopathy [Unknown]

NARRATIVE: CASE EVENT DATE: 20241201
